FAERS Safety Report 9421389 (Version 2)
Quarter: 2014Q2

REPORT INFORMATION
  Report Type: Spontaneous
  Country: US (occurrence: US)
  Receive Date: 20130725
  Receipt Date: 20140506
  Transmission Date: 20141212
  Serious: Yes (Death)
  Sender: FDA-Public Use
  Company Number: US-EXELIXIS-CABO-13003007

PATIENT
  Age: 47 Year
  Sex: Male

DRUGS (8)
  1. COMETRIQ [Suspect]
     Indication: THYROID CANCER
     Dosage: 40 MG, QD
     Route: 048
     Dates: start: 20130308, end: 20130322
  2. COMETRIQ [Suspect]
     Dosage: 40 MG, QD
     Route: 048
     Dates: start: 20130415, end: 20130601
  3. PROBIOTIC [Concomitant]
  4. VITAMIN D [Concomitant]
  5. EFFEXOR [Concomitant]
  6. PROMETHAZINE [Concomitant]
  7. SYNTHROID [Concomitant]
  8. FENTANYL [Concomitant]

REACTIONS (5)
  - Malignant neoplasm progression [Fatal]
  - Back pain [Unknown]
  - Pallor [Unknown]
  - Weight decreased [Unknown]
  - Asthenia [Unknown]
